FAERS Safety Report 9375101 (Version 1)
Quarter: 2013Q2

REPORT INFORMATION
  Report Type: Spontaneous
  Country: US (occurrence: US)
  Receive Date: 20130628
  Receipt Date: 20130628
  Transmission Date: 20140414
  Serious: No
  Sender: FDA-Public Use
  Company Number: US-PFIZER INC-2013190533

PATIENT
  Sex: 0

DRUGS (1)
  1. PREMARIN [Suspect]
     Dosage: 9 MG, UNK

REACTIONS (3)
  - Hot flush [Unknown]
  - Insomnia [Unknown]
  - Irritability [Unknown]
